FAERS Safety Report 24371956 (Version 1)
Quarter: 2024Q3

REPORT INFORMATION
  Report Type: Spontaneous
  Country: FR (occurrence: FR)
  Receive Date: 20240927
  Receipt Date: 20240927
  Transmission Date: 20241016
  Serious: Yes (Life-Threatening, Hospitalization, Other)
  Sender: MERCK
  Company Number: None

PATIENT
  Age: 18 Year
  Sex: Female
  Weight: 45 kg

DRUGS (12)
  1. KEYTRUDA [Suspect]
     Active Substance: PEMBROLIZUMAB
     Indication: Hodgkin^s disease stage III
     Dosage: TOTAL DOSE: 800 MG
     Route: 042
     Dates: start: 20240119, end: 20240402
  2. VINCRISTINE SULFATE [Suspect]
     Active Substance: VINCRISTINE SULFATE
     Indication: Hodgkin^s disease stage III
     Dosage: TOTAL DOSE: 9.32 MG
     Route: 042
     Dates: start: 20230512, end: 20230904
  3. BLEOMYCIN SULFATE [Suspect]
     Active Substance: BLEOMYCIN SULFATE
     Indication: Hodgkin^s disease stage III
     Dosage: TOTAL DOSE: 57.9 MG
     Route: 042
     Dates: start: 20230512, end: 20230719
  4. NAVELBINE [Suspect]
     Active Substance: VINORELBINE TARTRATE
     Indication: Hodgkin^s disease stage III
     Dosage: TOTAL DOSE: 128 MG, STRENGTH: 50 MG/5 ML, FORMULATION: SOLUTION FOR INJECTION IN VIAL
     Route: 042
     Dates: start: 20240119, end: 20240216
  5. OXALIPLATIN [Suspect]
     Active Substance: OXALIPLATIN
     Indication: Hodgkin^s disease stage III
     Dosage: TOTAL DOSE: 620 MG
     Route: 042
     Dates: start: 20240429, end: 20240625
  6. GEMCITABINE [Suspect]
     Active Substance: GEMCITABINE
     Indication: Hodgkin^s disease stage III
     Dosage: TOTAL DOSE: 6358 MG
     Route: 042
     Dates: start: 20240119, end: 20240216
  7. CYCLOPHOSPHAMIDE [Suspect]
     Active Substance: CYCLOPHOSPHAMIDE
     Indication: Hodgkin^s disease stage III
     Dosage: TOTAL DOSE: 11060 MG
     Route: 042
     Dates: start: 20230505, end: 20230828
  8. DEXAMETHASONE SODIUM PHOSPHATE [Suspect]
     Active Substance: DEXAMETHASONE PHOSPHATE\DEXAMETHASONE SODIUM PHOSPHATE
     Indication: Hodgkin^s disease stage III
     Dosage: TOTAL DOSE: 480 MG
     Route: 048
     Dates: start: 20240429, end: 20240628
  9. CYTARABINE [Suspect]
     Active Substance: CYTARABINE
     Indication: Hodgkin^s disease stage III
     Dosage: TOTAL DOSE: 19100 MG, STRENGTH: 1 G/20 ML
     Route: 042
     Dates: start: 20240430, end: 20240626
  10. ETOPOPHOS [Suspect]
     Active Substance: ETOPOSIDE PHOSPHATE
     Indication: Hodgkin^s disease stage III
     Dosage: TOTAL DOSE: 5280 MG, FORMULATION: LYOPHILISATE FOR PARENTERAL USE
     Route: 042
     Dates: start: 20230505, end: 20230830
  11. ADCETRIS [Suspect]
     Active Substance: BRENTUXIMAB VEDOTIN
     Indication: Hodgkin^s disease stage III
     Dosage: TOTAL DOSE: 310 MG, FORMULATION: POWDER FOR SOLUTION FOR DILUTION FOR INFUSION
     Route: 042
     Dates: start: 20240429, end: 20240625
  12. DOXORUBICIN HYDROCHLORIDE [Suspect]
     Active Substance: DOXORUBICIN HYDROCHLORIDE
     Indication: Hodgkin^s disease stage III
     Dosage: TOTAL DOSE: 403 MG
     Route: 042
     Dates: start: 20230505, end: 20240216

REACTIONS (2)
  - Cardiac failure [Recovered/Resolved]
  - Condition aggravated [Recovered/Resolved]

NARRATIVE: CASE EVENT DATE: 20240229
